FAERS Safety Report 4681765-0 (Version None)
Quarter: 2005Q2

REPORT INFORMATION
  Report Type: 
  Country: None (occurrence: None)
  Receive Date: 20050602
  Receipt Date: 20050525
  Transmission Date: 20051028
  Serious: Yes (Death, Hospitalization)
  Sender: FDA-Public Use
  Company Number: US-2005-004622

PATIENT
  Age: 41 Year
  Sex: Male
  Weight: 52.2 kg

DRUGS (1)
  1. BETASERON [Suspect]
     Indication: PRIMARY PROGRESSIVE MULTIPLE SCLEROSIS
     Dosage: SUBCUTANEOUS
     Route: 058
     Dates: start: 20011212, end: 20020301

REACTIONS (6)
  - DECUBITUS ULCER [None]
  - GENERAL PHYSICAL HEALTH DETERIORATION [None]
  - MULTIPLE SCLEROSIS [None]
  - PNEUMONIA [None]
  - RESPIRATORY ARREST [None]
  - SKIN GRAFT [None]
